FAERS Safety Report 24368954 (Version 1)
Quarter: 2024Q3

REPORT INFORMATION
  Report Type: Report from Study
  Country: US (occurrence: US)
  Receive Date: 20240927
  Receipt Date: 20240927
  Transmission Date: 20241017
  Serious: Yes (Hospitalization)
  Sender: ABBVIE
  Company Number: US-ABBVIE-5934290

PATIENT
  Sex: Female

DRUGS (2)
  1. RINVOQ [Suspect]
     Active Substance: UPADACITINIB
     Indication: Psoriatic arthropathy
     Dosage: STRENGTH :15MG?STOP DATE 2024
     Route: 048
     Dates: start: 202407
  2. RINVOQ [Suspect]
     Active Substance: UPADACITINIB
     Indication: Psoriatic arthropathy
     Dosage: STRENGTH :15MG?START DATE 2024
     Route: 048
     Dates: start: 2024

REACTIONS (7)
  - Hypophagia [Recovered/Resolved]
  - Pain [Unknown]
  - Muscle tightness [Unknown]
  - Nausea [Recovered/Resolved]
  - Dehydration [Recovered/Resolved]
  - Heart rate increased [Recovered/Resolved]
  - Therapeutic product effect incomplete [Unknown]

NARRATIVE: CASE EVENT DATE: 20240101
